FAERS Safety Report 7161433-6 (Version None)
Quarter: 2010Q4

REPORT INFORMATION
  Report Type: 
  Country: None (occurrence: None)
  Receive Date: 20101215
  Receipt Date: 20101210
  Transmission Date: 20110411
  Serious: Yes (Other)
  Sender: FDA-Public Use
  Company Number: BE-TYCO HEALTHCARE/MALLINCKRODT-T201002408

PATIENT
  Sex: Male

DRUGS (2)
  1. TECHNESCAN DTPA KIT [Suspect]
     Dosage: UNK
     Dates: start: 20101210, end: 20101210
  2. ULTRA-TECHNEKOW FM [Suspect]
     Dosage: UNK
     Dates: start: 20101210, end: 20101210

REACTIONS (1)
  - ANAPHYLACTIC SHOCK [None]
